FAERS Safety Report 7076072-5 (Version None)
Quarter: 2010Q4

REPORT INFORMATION
  Report Type: 
  Country: None (occurrence: None)
  Receive Date: 20101101
  Receipt Date: 20101025
  Transmission Date: 20110411
  Serious: No
  Sender: FDA-Public Use
  Company Number: US-BIOGENIDEC-2010BI037008

PATIENT
  Age: 46 Year
  Sex: Female

DRUGS (2)
  1. AVONEX [Suspect]
     Indication: MULTIPLE SCLEROSIS
     Route: 030
     Dates: start: 20101024
  2. AVONEX [Suspect]
     Route: 030
     Dates: start: 20050601, end: 20070101

REACTIONS (3)
  - ABASIA [None]
  - FATIGUE [None]
  - INFLUENZA LIKE ILLNESS [None]
